FAERS Safety Report 4880750-3 (Version None)
Quarter: 2006Q1

REPORT INFORMATION
  Report Type: 
  Country: None (occurrence: None)
  Receive Date: 20060111
  Receipt Date: 20051031
  Transmission Date: 20060701
  Serious: No
  Sender: FDA-Public Use
  Company Number: 2005S1000232

PATIENT
  Age: 45 Year

DRUGS (1)
  1. CUBICIN [Suspect]
     Indication: STAPHYLOCOCCAL BACTERAEMIA
     Dosage: 6 MG/KG; Q24H; IV
     Route: 042
     Dates: start: 20050101

REACTIONS (1)
  - INTERNATIONAL NORMALISED RATIO INCREASED [None]
